FAERS Safety Report 6876756-5 (Version None)
Quarter: 2010Q3

REPORT INFORMATION
  Report Type: 
  Country: None (occurrence: None)
  Receive Date: 20100727
  Receipt Date: 20100713
  Transmission Date: 20110219
  Serious: Yes (Other)
  Sender: FDA-Public Use
  Company Number: TR-ELI_LILLY_AND_COMPANY-TR201007003116

PATIENT
  Sex: Female
  Weight: 1.84 kg

DRUGS (3)
  1. HUMULIN N [Suspect]
     Dosage: UNK UNK, 2/D
     Route: 064
  2. HUMULIN N [Suspect]
     Dosage: 24 IU, EACH EVENING
     Route: 064
  3. MEGADYN PRONATAL [Concomitant]
     Dosage: UNK UNK, DAILY (1/D)
     Route: 064

REACTIONS (3)
  - DRUG EXPOSURE DURING PREGNANCY [None]
  - PREMATURE BABY [None]
  - SMALL FOR DATES BABY [None]
